FAERS Safety Report 5664799-9 (Version None)
Quarter: 2008Q1

REPORT INFORMATION
  Report Type: 
  Country: None (occurrence: None)
  Receive Date: 20080314
  Receipt Date: 20080228
  Transmission Date: 20080703
  Serious: Yes (Hospitalization)
  Sender: FDA-Public Use
  Company Number: US-AMGEN-US267609

PATIENT
  Sex: Female
  Weight: 77.1 kg

DRUGS (11)
  1. ROMIPLOSTIM [Suspect]
     Indication: THROMBOCYTOPENIA
     Route: 058
     Dates: start: 20080213
  2. NEULASTA [Suspect]
     Indication: CHEMOTHERAPY
     Route: 058
     Dates: start: 20080213
  3. RITUXIMAB [Concomitant]
  4. CYCLOPHOSPHAMIDE [Concomitant]
  5. DOXORUBICIN HYDROCHLORIDE [Concomitant]
  6. VINCRISTINE [Concomitant]
  7. PREDNISONE TAB [Concomitant]
  8. DIPROLENE [Concomitant]
     Route: 061
  9. BACTROBAN [Concomitant]
     Route: 061
  10. SILVADENE [Concomitant]
     Route: 061
  11. PLAQUENIL [Concomitant]

REACTIONS (3)
  - FEBRILE NEUTROPENIA [None]
  - MUCOSAL INFLAMMATION [None]
  - UPPER RESPIRATORY TRACT INFECTION [None]
